FAERS Safety Report 5455159-4 (Version None)
Quarter: 2007Q3

REPORT INFORMATION
  Report Type: 
  Country: None (occurrence: None)
  Receive Date: 20070914
  Receipt Date: 20070831
  Transmission Date: 20080115
  Serious: Yes (Hospitalization)
  Sender: FDA-Public Use
  Company Number: CERZ-11858

PATIENT
  Age: 56 Year
  Sex: Female
  Weight: 54.5 kg

DRUGS (6)
  1. CEREZYME [Suspect]
     Indication: GAUCHER'S DISEASE
     Dosage: 1000 UNITS Q2WKS IV
     Route: 042
     Dates: start: 20011018
  2. ASPIRIN [Concomitant]
  3. DUATROL [Concomitant]
  4. GLYCOASAMIDE [Concomitant]
  5. EVENING PRIMROSE [Concomitant]
  6. FISH OIL [Concomitant]

REACTIONS (8)
  - ANOREXIA [None]
  - BACTERAEMIA [None]
  - CENTRAL LINE INFECTION [None]
  - CHILLS [None]
  - DYSGEUSIA [None]
  - FATIGUE [None]
  - LETHARGY [None]
  - RHODOCOCCUS INFECTION [None]
